FAERS Safety Report 14665056 (Version 1)
Quarter: 2018Q1

REPORT INFORMATION
  Report Type: Spontaneous
  Country: US (occurrence: US)
  Receive Date: 20180319
  Receipt Date: 20180319
  Transmission Date: 20180509
  Serious: No
  Sender: FDA-Public Use
  Company Number: None

PATIENT
  Sex: Female

DRUGS (1)
  1. AZELESTINE [Suspect]
     Active Substance: AZELASTINE
     Dates: start: 20170301, end: 20180201

REACTIONS (1)
  - Hypersensitivity [None]
